FAERS Safety Report 9247721 (Version 1)
Quarter: 2013Q1

REPORT INFORMATION
  Report Type: Spontaneous
  Country: US (occurrence: None)
  Receive Date: 20121130
  Receipt Date: 20121130
  Transmission Date: 20140127
  Serious: Yes (Other)
  Sender: FDA-Public Use
  Company Number: 353997

PATIENT
  Age: 68 Year
  Sex: Male
  Weight: 106.6 kg

DRUGS (1)
  1. NOVOLOG MIX 70/30 FLEXPEN (INSULIN ASPART) SUSPENSION FOR INJECTION, 100U/ML [Suspect]
     Indication: TYPE 2 DIABETES MELLITUS
     Dosage: 45 U, BID, SC

REACTIONS (2)
  - Blood glucose decreased [None]
  - Blood glucose increased [None]
